FAERS Safety Report 13837317 (Version 1)
Quarter: 2017Q3

REPORT INFORMATION
  Report Type: Spontaneous
  Country: US (occurrence: US)
  Receive Date: 20170804
  Receipt Date: 20170804
  Transmission Date: 20171127
  Serious: No
  Sender: FDA-Public Use
  Company Number: US-ROCHE-1088733

PATIENT
  Age: 60 Year
  Sex: Female

DRUGS (4)
  1. SIMVASTIN [Concomitant]
     Active Substance: SIMVASTATIN
     Route: 065
  2. METFORMIN [Concomitant]
     Active Substance: METFORMIN HYDROCHLORIDE
  3. BONIVA [Suspect]
     Active Substance: IBANDRONATE SODIUM
     Indication: OSTEOPENIA
     Route: 048
     Dates: start: 20120711
  4. SIMVASTIN [Concomitant]
     Active Substance: SIMVASTATIN
     Route: 065

REACTIONS (5)
  - Sciatica [Not Recovered/Not Resolved]
  - Muscle strain [Not Recovered/Not Resolved]
  - Muscle spasms [Unknown]
  - Diarrhoea [Recovering/Resolving]
  - Pain in jaw [Not Recovered/Not Resolved]

NARRATIVE: CASE EVENT DATE: 20120712
